FAERS Safety Report 4324783-4 (Version None)
Quarter: 2004Q1

REPORT INFORMATION
  Report Type: 
  Country: None (occurrence: None)
  Receive Date: 20040326
  Receipt Date: 20040323
  Transmission Date: 20041129
  Serious: Yes (Hospitalization)
  Sender: FDA-Public Use
  Company Number: US-GLAXOSMITHKLINE-A0504050A

PATIENT
  Age: 18 Year
  Sex: Female
  Weight: 127.3 kg

DRUGS (3)
  1. AVANDIA [Suspect]
     Indication: INSULIN RESISTANCE
     Dosage: 8MG PER DAY
     Route: 048
     Dates: start: 20031101
  2. IBUPROFEN [Concomitant]
  3. ENTEX CAP [Concomitant]

REACTIONS (11)
  - BACK PAIN [None]
  - BLOOD GLUCOSE DECREASED [None]
  - CONFUSIONAL STATE [None]
  - HEADACHE [None]
  - INSOMNIA [None]
  - MENSTRUAL DISORDER [None]
  - MENTAL IMPAIRMENT [None]
  - NERVOUSNESS [None]
  - OVARIAN CYST [None]
  - PERSONALITY CHANGE [None]
  - WEIGHT INCREASED [None]
